FAERS Safety Report 8709090 (Version 2)
Quarter: 2014Q3

REPORT INFORMATION
  Report Type: Spontaneous
  Country: AU (occurrence: AU)
  Receive Date: 20120806
  Receipt Date: 20140908
  Transmission Date: 20150326
  Serious: Yes (Death, Other)
  Sender: FDA-Public Use
  Company Number: AU-ROCHE-1097438

PATIENT
  Sex: Female

DRUGS (10)
  1. HERCEPTIN [Suspect]
     Active Substance: TRASTUZUMAB
     Indication: BREAST CANCER
     Dosage: FIRST LINE THEARPY AND FOURTH LINE THERAPY
     Route: 065
  2. NAVELBINE [Concomitant]
     Active Substance: VINORELBINE TARTRATE
     Dosage: FIRST LINE THEARPY
     Route: 065
  3. TYKERB [Concomitant]
     Active Substance: LAPATINIB DITOSYLATE
     Dosage: SECOND LINE THERAPY
     Route: 065
  4. KADCYLA [Suspect]
     Active Substance: ADO-TRASTUZUMAB EMTANSINE
     Indication: PRODUCT USED FOR UNKNOWN INDICATION
     Dosage: THIRD LINE THERAPY
     Route: 065
  5. ABRAXANE [Suspect]
     Active Substance: PACLITAXEL
     Indication: PRODUCT USED FOR UNKNOWN INDICATION
     Dosage: FOURTH LINE THERAPY
     Route: 065
  6. ERIBULIN [Suspect]
     Active Substance: ERIBULIN
     Indication: PRODUCT USED FOR UNKNOWN INDICATION
     Dosage: FIFTH LINE THERAPY
     Route: 065
  7. TAXOTERE [Concomitant]
     Active Substance: DOCETAXEL
  8. EVEROLIMUS [Concomitant]
     Active Substance: EVEROLIMUS
     Dosage: FIRST INE THERAPY
     Route: 065
  9. XELODA [Suspect]
     Active Substance: CAPECITABINE
     Indication: BREAST CANCER
     Dosage: SECOND LINE THERAPY
     Route: 065
  10. PERTUZUMAB [Suspect]
     Active Substance: PERTUZUMAB
     Indication: PRODUCT USED FOR UNKNOWN INDICATION
     Dosage: FOURTH LINE THERAPY
     Route: 065

REACTIONS (9)
  - Death [Fatal]
  - Disease progression [Unknown]
  - Palmar-plantar erythrodysaesthesia syndrome [Unknown]
  - Respiratory failure [Unknown]
  - Mouth ulceration [Unknown]
  - Metastatic neoplasm [Unknown]
  - Diarrhoea [Unknown]
  - Neoplasm skin [Unknown]
  - Liver function test abnormal [Unknown]
